FAERS Safety Report 9415195 (Version 1)
Quarter: 2013Q3

REPORT INFORMATION
  Report Type: Spontaneous
  Country: US (occurrence: US)
  Receive Date: 20130723
  Receipt Date: 20130723
  Transmission Date: 20140515
  Serious: No
  Sender: FDA-Public Use
  Company Number: US-BAYER-2013-088981

PATIENT
  Age: 75 Year
  Sex: Female
  Weight: 68.03 kg

DRUGS (1)
  1. ALEVE TABLET [Suspect]
     Indication: ANALGESIC THERAPY
     Dosage: 1 DF, BID
     Route: 048

REACTIONS (2)
  - Drug ineffective [None]
  - Incorrect drug administration duration [None]
